FAERS Safety Report 25731670 (Version 1)
Quarter: 2025Q3

REPORT INFORMATION
  Report Type: Spontaneous
  Country: US (occurrence: US)
  Receive Date: 20250827
  Receipt Date: 20250827
  Transmission Date: 20251020
  Serious: No
  Sender: RVL PHARMACEUTICALS
  Company Number: US-RVL_Pharmaceuticals-USA-ALL1255202500015

PATIENT
  Age: 73 Year
  Sex: Female

DRUGS (3)
  1. UPNEEQ [Suspect]
     Active Substance: OXYMETAZOLINE HYDROCHLORIDE
     Indication: Eyelid ptosis
     Dosage: OU
     Route: 047
     Dates: start: 20241229, end: 202412
  2. LIPITOR [Concomitant]
     Active Substance: ATORVASTATIN CALCIUM
     Indication: Product used for unknown indication
  3. XARELTO [Concomitant]
     Active Substance: RIVAROXABAN
     Indication: Product used for unknown indication

REACTIONS (2)
  - Swelling of eyelid [Recovered/Resolved]
  - Asthenopia [Recovered/Resolved]

NARRATIVE: CASE EVENT DATE: 20241229
